FAERS Safety Report 7351434-7 (Version None)
Quarter: 2011Q1

REPORT INFORMATION
  Report Type: 
  Country: None (occurrence: None)
  Receive Date: 20110314
  Receipt Date: 20110222
  Transmission Date: 20110831
  Serious: Yes (Hospitalization, Other)
  Sender: FDA-Public Use
  Company Number: NO-ELI_LILLY_AND_COMPANY-NO201102004041

PATIENT
  Age: 60 Year
  Sex: Male

DRUGS (4)
  1. ORFIRIL [Concomitant]
     Indication: EPILEPSY
  2. TRILAFON [Concomitant]
  3. TEGRETOL [Concomitant]
     Indication: EPILEPSY
  4. ZYPREXA [Suspect]

REACTIONS (2)
  - INAPPROPRIATE ANTIDIURETIC HORMONE SECRETION [None]
  - DRUG INTERACTION [None]
